FAERS Safety Report 8511337-9 (Version None)
Quarter: 2012Q3

REPORT INFORMATION
  Report Type: 
  Country: None (occurrence: None)
  Receive Date: 20120716
  Receipt Date: 20120705
  Transmission Date: 20120928
  Serious: No
  Sender: FDA-Public Use
  Company Number: US-009507513-1207USA001911

PATIENT

DRUGS (1)
  1. PROVENTIL [Suspect]

REACTIONS (2)
  - MEDICATION ERROR [None]
  - INCORRECT STORAGE OF DRUG [None]
